FAERS Safety Report 15869721 (Version 1)
Quarter: 2019Q1

REPORT INFORMATION
  Report Type: Report from Study
  Country: US (occurrence: US)
  Receive Date: 20190125
  Receipt Date: 20190125
  Transmission Date: 20190417
  Serious: Yes (Other)
  Sender: FDA-Public Use
  Company Number: US-ACTELION-A-NJ2019-185297

PATIENT
  Age: 68 Year
  Sex: Male

DRUGS (1)
  1. OPSUMIT [Suspect]
     Active Substance: MACITENTAN
     Indication: PULMONARY HYPERTENSION
     Dosage: 10 MG, QD
     Route: 048
     Dates: start: 20160813

REACTIONS (6)
  - Fall [Unknown]
  - Contusion [Unknown]
  - Cough [Unknown]
  - Rib fracture [Unknown]
  - Pain [Unknown]
  - Tenderness [Unknown]

NARRATIVE: CASE EVENT DATE: 20190107
